FAERS Safety Report 4948176-1 (Version None)
Quarter: 2006Q1

REPORT INFORMATION
  Report Type: 
  Country: None (occurrence: None)
  Receive Date: 20060313
  Receipt Date: 20060227
  Transmission Date: 20060701
  Serious: Yes (Death, Hospitalization)
  Sender: FDA-Public Use
  Company Number: HQWYE043528FEB06

PATIENT
  Age: 83 Year
  Sex: Female

DRUGS (4)
  1. PANTOPRAZOLE SODIUM [Suspect]
     Indication: GASTRIC ULCER
     Dosage: 40 MG 1X PER 1 DAY
  2. ARTHROTEC [Suspect]
     Indication: PAIN
     Dosage: ORAL
     Route: 048
     Dates: end: 20051029
  3. PHENOBARBITAL TAB [Suspect]
     Indication: EPILEPSY
     Dosage: 100 MG 1X PER 1 DAY ORAL
     Route: 048
  4. PLENDIL [Suspect]
     Indication: SECONDARY HYPERTENSION
     Dosage: 5 MG 1X PER 1 DAY ORAL
     Route: 048

REACTIONS (5)
  - CHOLESTASIS [None]
  - CONDITION AGGRAVATED [None]
  - GENERAL PHYSICAL HEALTH DETERIORATION [None]
  - HEPATIC FAILURE [None]
  - JAUNDICE [None]
